FAERS Safety Report 19827752 (Version 1)
Quarter: 2021Q3

REPORT INFORMATION
  Report Type: Report from Study
  Country: US (occurrence: US)
  Receive Date: 20210914
  Receipt Date: 20210914
  Transmission Date: 20211014
  Serious: Yes (Hospitalization, Other)
  Sender: FDA-Public Use
  Company Number: US-ASTELLAS-2020US012232

PATIENT
  Age: 77 Year
  Sex: Male

DRUGS (1)
  1. ENZALUTAMIDE [Suspect]
     Active Substance: ENZALUTAMIDE
     Indication: PROSTATE CANCER
     Route: 048
     Dates: start: 20200228

REACTIONS (9)
  - Syncope [Unknown]
  - Fall [Recovering/Resolving]
  - Cataract [Unknown]
  - Pain [Unknown]
  - Underdose [Unknown]
  - Bone contusion [Recovering/Resolving]
  - Product use complaint [Unknown]
  - Off label use [Unknown]
  - Seizure like phenomena [Unknown]

NARRATIVE: CASE EVENT DATE: 20200228
